FAERS Safety Report 25624752 (Version 2)
Quarter: 2025Q3

REPORT INFORMATION
  Report Type: Report from Study
  Country: US (occurrence: US)
  Receive Date: 20250730
  Receipt Date: 20250916
  Transmission Date: 20251020
  Serious: Yes (Hospitalization, Other)
  Sender: ABBVIE
  Company Number: US-ABBVIE-6393257

PATIENT
  Age: 68 Year
  Sex: Male

DRUGS (1)
  1. SKYRIZI [Suspect]
     Active Substance: RISANKIZUMAB-RZAA
     Indication: Product used for unknown indication
     Route: 058
     Dates: start: 20250601

REACTIONS (6)
  - Pain in jaw [Unknown]
  - Small cell lung cancer [Unknown]
  - Headache [Unknown]
  - Vomiting [Unknown]
  - Blood sodium decreased [Unknown]
  - Liver disorder [Unknown]

NARRATIVE: CASE EVENT DATE: 20250101
